FAERS Safety Report 21264679 (Version 1)
Quarter: 2022Q3

REPORT INFORMATION
  Report Type: Spontaneous
  Country: US (occurrence: None)
  Receive Date: 20220827
  Receipt Date: 20220827
  Transmission Date: 20221027
  Serious: Yes (Hospitalization)
  Sender: FDA-Public Use
  Company Number: None

PATIENT
  Age: 69 Year
  Sex: Male
  Weight: 87.09 kg

DRUGS (1)
  1. KETOROLAC TROMETHAMINE [Suspect]
     Active Substance: KETOROLAC TROMETHAMINE
     Indication: Pain
     Dosage: 60 MG ONCE IM?
     Route: 030
     Dates: start: 20220823, end: 20220823

REACTIONS (2)
  - Anaphylactic reaction [None]
  - Respiratory depression [None]

NARRATIVE: CASE EVENT DATE: 20220823
